FAERS Safety Report 12328456 (Version 1)
Quarter: 2016Q2

REPORT INFORMATION
  Report Type: Spontaneous
  Country: US (occurrence: US)
  Receive Date: 20160503
  Receipt Date: 20160503
  Transmission Date: 20160815
  Serious: No
  Sender: FDA-Public Use
  Company Number: US-BEH-2014047639

PATIENT
  Sex: Female
  Weight: 89.6 kg

DRUGS (33)
  1. L-M-X [Concomitant]
  2. LANTUS [Concomitant]
     Active Substance: INSULIN GLARGINE
  3. FENOFIBRATE. [Concomitant]
     Active Substance: FENOFIBRATE
  4. RANITIDINE. [Concomitant]
     Active Substance: RANITIDINE
  5. PREDNISONE. [Concomitant]
     Active Substance: PREDNISONE
  6. HIZENTRA [Suspect]
     Active Substance: HUMAN IMMUNOGLOBULIN G
     Dosage: START DATE FEB-2011
     Route: 058
  7. HIZENTRA [Suspect]
     Active Substance: HUMAN IMMUNOGLOBULIN G
     Indication: IMMUNODEFICIENCY COMMON VARIABLE
     Dosage: START DATE FEB-2011
     Route: 058
  8. EPIPEN [Concomitant]
     Active Substance: EPINEPHRINE
  9. TOVIAZ [Concomitant]
     Active Substance: FESOTERODINE FUMARATE
  10. ACETAMINOPHEN\HYDROCODONE BITARTRATE [Concomitant]
     Active Substance: ACETAMINOPHEN\HYDROCODONE BITARTRATE
  11. BENZONATATE. [Concomitant]
     Active Substance: BENZONATATE
  12. POTASSIUM [Concomitant]
     Active Substance: POTASSIUM
  13. METHOCARBAMOL. [Concomitant]
     Active Substance: METHOCARBAMOL
  14. BUDESONIDE. [Concomitant]
     Active Substance: BUDESONIDE
  15. DIPHENHYDRAMINE. [Concomitant]
     Active Substance: DIPHENHYDRAMINE
  16. LISINOPRIL. [Concomitant]
     Active Substance: LISINOPRIL
  17. MUCINEX [Concomitant]
     Active Substance: GUAIFENESIN
  18. LEVAQUIN [Concomitant]
     Active Substance: LEVOFLOXACIN
  19. HIZENTRA [Suspect]
     Active Substance: HUMAN IMMUNOGLOBULIN G
     Route: 058
     Dates: start: 20150303
  20. SINGULAIR [Concomitant]
     Active Substance: MONTELUKAST SODIUM
  21. JANUMET [Concomitant]
     Active Substance: METFORMIN HYDROCHLORIDE\SITAGLIPTIN PHOSPHATE
  22. ETODOLAC. [Concomitant]
     Active Substance: ETODOLAC
  23. OMEPRAZOLE. [Concomitant]
     Active Substance: OMEPRAZOLE
  24. ALBUTEROL. [Concomitant]
     Active Substance: ALBUTEROL
  25. HIZENTRA [Suspect]
     Active Substance: HUMAN IMMUNOGLOBULIN G
     Route: 058
     Dates: start: 20150303
  26. HIZENTRA [Suspect]
     Active Substance: HUMAN IMMUNOGLOBULIN G
     Route: 058
     Dates: start: 20150303
  27. AMBIEN [Concomitant]
     Active Substance: ZOLPIDEM TARTRATE
  28. FLUTICASONE [Concomitant]
     Active Substance: FLUTICASONE\FLUTICASONE PROPIONATE
  29. LYRICA [Concomitant]
     Active Substance: PREGABALIN
  30. TRIAMTERENE-HCTZ [Concomitant]
     Active Substance: HYDROCHLOROTHIAZIDE\TRIAMTERENE
  31. OMEGA-3 FISH OIL [Concomitant]
     Active Substance: FISH OIL\OMEGA-3 FATTY ACIDS
  32. GRAPE SEED [Concomitant]
  33. OXYGEN. [Concomitant]
     Active Substance: OXYGEN

REACTIONS (2)
  - Headache [Recovered/Resolved]
  - Nausea [Recovered/Resolved]
